FAERS Safety Report 9870176 (Version 1)
Quarter: 2014Q1

REPORT INFORMATION
  Report Type: Spontaneous
  Country: HU (occurrence: None)
  Receive Date: 20140131
  Receipt Date: 20140131
  Transmission Date: 20141002
  Serious: Yes (Other)
  Sender: FDA-Public Use
  Company Number: FK201400222

PATIENT
  Age: 75 Year
  Sex: Female

DRUGS (1)
  1. PACLITAXEL [Suspect]
     Indication: OVARIAN CANCER METASTATIC
     Dosage: 100 MG, 1 IN 1 WK, INTRAVENOUS (NOT OTHERWISE SPECIFIED)
     Route: 042
     Dates: start: 20140108, end: 20140108

REACTIONS (2)
  - Hypersensitivity [None]
  - Infusion related reaction [None]
